FAERS Safety Report 9213205 (Version 1)
Quarter: 2013Q1

REPORT INFORMATION
  Report Type: Spontaneous
  Country: US (occurrence: None)
  Receive Date: 20120820
  Receipt Date: 20120820
  Transmission Date: 20140127
  Serious: No
  Sender: FDA-Public Use
  Company Number: 1000030800

PATIENT
  Age: 41 Year
  Sex: Female

DRUGS (6)
  1. VIIBRYD [Suspect]
     Indication: DEPRESSION
     Dosage: (10 MG, 1 IN 1D)
     Route: 048
     Dates: start: 201110, end: 2011
  2. VIIBRYD [Suspect]
     Indication: DEPRESSION
     Dosage: (40 MG, 1 IN 1D)
     Route: 048
     Dates: start: 2011, end: 201205
  3. VIIBRYD [Suspect]
     Dosage: (20 MG, 1 IN 1D)
     Route: 048
     Dates: start: 2011, end: 2011
  4. VIIBRYD [Suspect]
     Dosage: (20 MG, 1 IN 1D)
     Route: 048
     Dates: start: 201205
  5. SYNTHROID [Concomitant]
  6. VITAMIN D [Concomitant]

REACTIONS (3)
  - Insomnia [None]
  - Nightmare [None]
  - Anxiety [None]
